FAERS Safety Report 19506149 (Version 1)
Quarter: 2021Q3

REPORT INFORMATION
  Report Type: Spontaneous
  Country: BR (occurrence: BR)
  Receive Date: 20210708
  Receipt Date: 20210708
  Transmission Date: 20211014
  Serious: Yes (Hospitalization)
  Sender: FDA-Public Use
  Company Number: BR-ROCHE-2861499

PATIENT
  Age: 53 Year
  Sex: Male
  Weight: 87 kg

DRUGS (8)
  1. AVASTIN [Suspect]
     Active Substance: BEVACIZUMAB
     Indication: ADENOCARCINOMA OF COLON
     Dosage: DILUTED 100 ML OF 0.9% SALINE SOLUTION FOR 30 MINUTES
     Route: 042
     Dates: start: 20200108
  2. FAULDFLUOR [Suspect]
     Active Substance: FLUOROURACIL
     Dosage: 4428 MG IN ELASTOMERIC INFUSER 46 HOURS DILUTED IN 10 ML OF 0.9% SALINE SOLUTION
     Route: 042
  3. FOSAPREPITANT [Concomitant]
     Active Substance: FOSAPREPITANT
  4. CALCIUM FOLINATE [Concomitant]
     Active Substance: LEUCOVORIN CALCIUM
  5. URSACOL [Concomitant]
     Active Substance: URSODIOL
  6. DEXAMETHASONE. [Concomitant]
     Active Substance: DEXAMETHASONE
  7. FAULDFLUOR [Suspect]
     Active Substance: FLUOROURACIL
     Indication: ADENOCARCINOMA OF COLON
     Dosage: DILUTED IN 50 ML OF 0.9% SALINE
     Route: 040
     Dates: start: 20200108
  8. PALONOSETRON. [Concomitant]
     Active Substance: PALONOSETRON HYDROCHLORIDE

REACTIONS (6)
  - Pancreatitis [Unknown]
  - Weight decreased [Unknown]
  - Nausea [Unknown]
  - Biliary obstruction [Unknown]
  - Aspartate aminotransferase increased [Unknown]
  - Alanine aminotransferase increased [Unknown]

NARRATIVE: CASE EVENT DATE: 20210511
